FAERS Safety Report 8558365-5 (Version None)
Quarter: 2012Q3

REPORT INFORMATION
  Report Type: 
  Country: None (occurrence: None)
  Receive Date: 20120801
  Receipt Date: 20120723
  Transmission Date: 20120928
  Serious: Yes (Disabling, Other)
  Sender: FDA-Public Use
  Company Number: US-MSD-1207USA011306

PATIENT

DRUGS (8)
  1. SERTRALINE HYDROCHLORIDE [Concomitant]
     Dosage: UNK
  2. LETROZOLE [Suspect]
     Dosage: 2.5 MG, QD
     Route: 048
  3. ASPIRIN [Concomitant]
  4. LANSOPRAZOLE [Concomitant]
  5. BISOPROLOL FUMARATE [Concomitant]
  6. CALCIUM CARBONATE [Concomitant]
  7. ZOCOR [Suspect]
     Dosage: 20 MG, QD
     Route: 048
  8. ACETAMINOPHEN [Concomitant]

REACTIONS (3)
  - MYALGIA [None]
  - BLOOD CREATINE PHOSPHOKINASE INCREASED [None]
  - ARTHRALGIA [None]
